FAERS Safety Report 11345003 (Version 3)
Quarter: 2015Q3

REPORT INFORMATION
  Report Type: Spontaneous
  Country: GB (occurrence: GB)
  Receive Date: 20150806
  Receipt Date: 20150930
  Transmission Date: 20151125
  Serious: Yes (Hospitalization, Other)
  Sender: FDA-Public Use
  Company Number: GB-SA-2015SA113838

PATIENT
  Age: 77 Year
  Sex: Female

DRUGS (6)
  1. PERTUZUMAB [Suspect]
     Active Substance: PERTUZUMAB
     Dosage: ADMINISTERED IN LOWER ABDOMEN
  2. NEULASTA [Suspect]
     Active Substance: PEGFILGRASTIM
     Route: 065
     Dates: start: 20150730
  3. NEULASTA [Suspect]
     Active Substance: PEGFILGRASTIM
     Route: 065
  4. DOCETAXEL. [Suspect]
     Active Substance: DOCETAXEL
     Route: 065
  5. HERCEPTIN [Suspect]
     Active Substance: TRASTUZUMAB
     Dosage: ?ADMINISTERED IN LOWER ABDOMEN
  6. HERCEPTIN [Suspect]
     Active Substance: TRASTUZUMAB
     Dosage: ADMINISTERED IN LOWER ABDOMEN?CYCLE 2
     Route: 058

REACTIONS (31)
  - Bone pain [Unknown]
  - Asthenia [Unknown]
  - Vascular fragility [Unknown]
  - Ulcer [Unknown]
  - Gingival pain [Unknown]
  - Oral pain [Unknown]
  - Vaginal prolapse [Unknown]
  - Fatigue [Unknown]
  - Nausea [Recovered/Resolved]
  - Hypoaesthesia [Unknown]
  - Tongue coated [Unknown]
  - Paraesthesia [Unknown]
  - Pollakiuria [Recovered/Resolved]
  - Musculoskeletal discomfort [Unknown]
  - Insomnia [Unknown]
  - Oral candidiasis [Unknown]
  - Dysgeusia [Unknown]
  - Micturition urgency [Not Recovered/Not Resolved]
  - Alopecia [Unknown]
  - Feeling abnormal [Unknown]
  - Constipation [Not Recovered/Not Resolved]
  - Decreased appetite [Unknown]
  - Irritable bowel syndrome [Unknown]
  - Lower respiratory tract infection [Unknown]
  - Glossodynia [Unknown]
  - Hypophagia [Unknown]
  - Device dislocation [Unknown]
  - Urinary tract infection [Unknown]
  - Diarrhoea [Unknown]
  - Chest discomfort [Unknown]
  - Lethargy [Unknown]

NARRATIVE: CASE EVENT DATE: 20150730
